FAERS Safety Report 8757560 (Version 2)
Quarter: 2012Q4

REPORT INFORMATION
  Report Type: 
  Country: US (occurrence: US)
  Receive Date: 20120828
  Receipt Date: 20120927
  Transmission Date: 20130627
  Serious: Yes (Other)
  Sender: FDA-Public Use
  Company Number: US-PFIZER INC-2012208101

PATIENT
  Age: 76 Year
  Sex: Female
  Weight: 54 kg

DRUGS (5)
  1. ATORVASTATIN CALCIUM [Suspect]
     Indication: BLOOD CHOLESTEROL INCREASED
     Dosage: 10 mg, 1x/day
  2. ATORVASTATIN CALCIUM [Suspect]
     Indication: BLOOD CHOLESTEROL INCREASED
     Dosage: 20 mg, 1x/day
     Dates: end: 2012
  3. ATORVASTATIN CALCIUM [Suspect]
     Indication: BLOOD CHOLESTEROL INCREASED
     Dosage: 20 mg, 1x/day
     Dates: start: 2012, end: 201207
  4. AMLODIPINE [Concomitant]
     Indication: HYPERTENSION
     Dosage: 5 mg, UNK
  5. ALPRAZOLAM [Concomitant]
     Indication: NEUROPATHY PERIPHERAL
     Dosage: 0.25 mg, 1x/day

REACTIONS (5)
  - Abasia [Recovering/Resolving]
  - Gait disturbance [Recovering/Resolving]
  - Muscle disorder [Recovering/Resolving]
  - Muscular weakness [Recovering/Resolving]
  - Drug ineffective [Unknown]
